FAERS Safety Report 16213529 (Version 1)
Quarter: 2019Q2

REPORT INFORMATION
  Report Type: Report from Study
  Country: None (occurrence: BR)
  Receive Date: 20190418
  Receipt Date: 20190418
  Transmission Date: 20190711
  Serious: Yes (Other)
  Sender: FDA-Public Use
  Company Number: BR-ABBVIE-19K-020-2743729-00

PATIENT
  Age: 57 Year
  Sex: Female
  Weight: 93 kg

DRUGS (3)
  1. DEXCHLORPHENIRAMINE MALEATE. [Concomitant]
     Active Substance: DEXCHLORPHENIRAMINE MALEATE
     Indication: HYPERSENSITIVITY
     Dates: start: 20190328
  2. HUMIRA [Suspect]
     Active Substance: ADALIMUMAB
     Indication: RHEUMATOID ARTHRITIS
     Route: 058
     Dates: start: 20170404, end: 201902
  3. BROMOPRIDE [Concomitant]
     Active Substance: BROMOPRIDE
     Indication: PRODUCT USED FOR UNKNOWN INDICATION
     Dates: start: 20190410

REACTIONS (7)
  - Inflammation [Unknown]
  - Nasopharyngitis [Recovering/Resolving]
  - Uterine polyp [Recovering/Resolving]
  - Nodule [Unknown]
  - Limb discomfort [Unknown]
  - Pain [Unknown]
  - Hepatitis A [Recovered/Resolved]

NARRATIVE: CASE EVENT DATE: 20180203
